FAERS Safety Report 4383045-X (Version None)
Quarter: 2004Q2

REPORT INFORMATION
  Report Type: 
  Country: None (occurrence: None)
  Receive Date: 20040610
  Receipt Date: 20040123
  Transmission Date: 20050107
  Serious: Yes (Hospitalization)
  Sender: FDA-Public Use
  Company Number: TAP2004Q00114

PATIENT
  Age: 36 Year
  Sex: Female
  Weight: 54.4316 kg

DRUGS (3)
  1. LUPRON [Suspect]
     Indication: IN VITRO FERTILISATION
     Dosage: 2 IN 1 D, SUBCUTANEOUS
     Route: 058
     Dates: start: 20031020, end: 20031103
  2. FOLIC ACID [Concomitant]
  3. GONAL-F [Concomitant]

REACTIONS (5)
  - DYSPNOEA [None]
  - HEART RATE INCREASED [None]
  - INFLUENZA [None]
  - PNEUMONIA [None]
  - PYREXIA [None]
